FAERS Safety Report 4508886-7 (Version None)
Quarter: 2004Q4

REPORT INFORMATION
  Report Type: 
  Country: None (occurrence: None)
  Receive Date: 20041118
  Receipt Date: 20041102
  Transmission Date: 20050328
  Serious: Yes (Other)
  Sender: FDA-Public Use
  Company Number: 210430

PATIENT
  Age: 68 Year
  Sex: Female
  Weight: 51 kg

DRUGS (4)
  1. HERCEPTIN [Suspect]
     Indication: BREAST CANCER METASTATIC
     Dosage: 2 MG/KG, 1/WEEK, INTRAVENOUS
     Route: 042
     Dates: start: 20040201, end: 20041006
  2. VINORELBINE (VINORELBINE) [Suspect]
     Dosage: 25 MG/KG
     Route: 042
     Dates: start: 20040201, end: 20041006
  3. DEXAMETHASONE [Concomitant]
  4. KYTRIL [Concomitant]

REACTIONS (1)
  - PLEURAL FIBROSIS [None]
